FAERS Safety Report 23526762 (Version 1)
Quarter: 2024Q1

REPORT INFORMATION
  Report Type: Spontaneous
  Country: US (occurrence: None)
  Receive Date: 20240214
  Receipt Date: 20240214
  Transmission Date: 20240410
  Serious: Yes (Death)
  Sender: FDA-Public Use
  Company Number: None

PATIENT
  Age: 80 Year
  Sex: Male

DRUGS (1)
  1. POMALYST [Suspect]
     Active Substance: POMALIDOMIDE
     Indication: Plasma cell myeloma
     Dosage: 4MG QD ORAL
     Route: 048
     Dates: start: 20231127, end: 20231128

REACTIONS (5)
  - Pneumonia [None]
  - Bacteraemia [None]
  - Urinary tract infection [None]
  - Cellulitis [None]
  - Hospice care [None]

NARRATIVE: CASE EVENT DATE: 20231219
